FAERS Safety Report 20937299 (Version 2)
Quarter: 2022Q2

REPORT INFORMATION
  Report Type: Other
  Country: AU (occurrence: None)
  Receive Date: 20220609
  Receipt Date: 20220610
  Transmission Date: 20220720
  Serious: No
  Sender: FDA-Public Use
  Company Number: AU-ROCHE-3113969

PATIENT
  Age: 71 Year
  Sex: Female
  Weight: 96 kg

DRUGS (7)
  1. OCREVUS [Suspect]
     Active Substance: OCRELIZUMAB
     Indication: Multiple sclerosis
     Route: 042
  2. METOPROLOL TARTRATE [Concomitant]
     Active Substance: METOPROLOL TARTRATE
     Dosage: COATED TABLET, DOSE 1 MANE
  3. PANTOPRAZOLE [Concomitant]
     Active Substance: PANTOPRAZOLE
     Dosage: GASTRO RESISTANT TABLET, DOSE 1 MANE
  4. OXYBUTYNIN CHLORIDE [Concomitant]
     Active Substance: OXYBUTYNIN CHLORIDE
     Dosage: DOSE 1 MANE
     Route: 048
  5. TELMISARTAN [Concomitant]
     Active Substance: TELMISARTAN
     Dosage: DOSE 1 MANE, MIZART TABLET
     Route: 048
  6. SERTRALINE [Concomitant]
     Active Substance: SERTRALINE HYDROCHLORIDE
     Dosage: DOSE 1 MANE, COATED TABLET (ELEVA TABLETS)
     Route: 048
  7. MELOXICAM [Concomitant]
     Active Substance: MELOXICAM
     Dosage: DOSE 1 NOCTE, COATED TABLET (MOXICAM TABLETS), PROCHLORPERAZINE MALEATE
     Route: 048

REACTIONS (2)
  - COVID-19 [Recovering/Resolving]
  - Cough [Recovering/Resolving]

NARRATIVE: CASE EVENT DATE: 20220606
